FAERS Safety Report 8221742-6 (Version None)
Quarter: 2012Q1

REPORT INFORMATION
  Report Type: 
  Country: None (occurrence: None)
  Receive Date: 20120320
  Receipt Date: 20120305
  Transmission Date: 20120608
  Serious: Yes (Hospitalization)
  Sender: FDA-Public Use
  Company Number: US-ASTELLAS-2012US002914

PATIENT
  Sex: Female
  Weight: 79 kg

DRUGS (1)
  1. ERLOTINIB HYDROCHLORIDE [Suspect]
     Indication: NON-SMALL CELL LUNG CANCER
     Dosage: 150 MG, UID/QD
     Route: 048
     Dates: end: 20120206

REACTIONS (4)
  - DYSPNOEA [None]
  - PNEUMONITIS [None]
  - COUGH [None]
  - PULMONARY OEDEMA [None]
